FAERS Safety Report 25448526 (Version 1)
Quarter: 2025Q2

REPORT INFORMATION
  Report Type: Spontaneous
  Country: CN (occurrence: CN)
  Receive Date: 20250618
  Receipt Date: 20250618
  Transmission Date: 20250717
  Serious: Yes (Hospitalization)
  Sender: SHENZHEN TECHDOW PHARMACEUTICAL
  Company Number: CN-adr44030518216-HPR2025000303

PATIENT
  Age: 90 Year
  Sex: Male
  Weight: 60 kg

DRUGS (3)
  1. ENOXAPARIN SODIUM [Suspect]
     Active Substance: ENOXAPARIN SODIUM
     Indication: Anticoagulant therapy
     Dosage: 0.4ML,QD
     Dates: start: 20250531, end: 20250602
  2. KETOROLAC TROMETHAMINE [Suspect]
     Active Substance: KETOROLAC TROMETHAMINE
     Indication: Pain
     Dosage: 30MG,TID
     Route: 041
     Dates: start: 20250531, end: 20250602
  3. Danhong Injection [Concomitant]
     Indication: Ecchymosis
     Dosage: 20ML,QD
     Route: 041
     Dates: start: 20250531, end: 20250602

REACTIONS (5)
  - Lower gastrointestinal haemorrhage [Unknown]
  - Muscle twitching [Recovering/Resolving]
  - Pallor [Recovering/Resolving]
  - Pallor [Recovering/Resolving]
  - Delirium [Recovering/Resolving]

NARRATIVE: CASE EVENT DATE: 20250602
